FAERS Safety Report 18347452 (Version 2)
Quarter: 2020Q4

REPORT INFORMATION
  Report Type: Report from Study
  Country: GB (occurrence: GB)
  Receive Date: 20201006
  Receipt Date: 20201022
  Transmission Date: 20210114
  Serious: Yes (Other)
  Sender: FDA-Public Use
  Company Number: PHHY2019GB175830

PATIENT
  Age: 29 Year
  Sex: Female

DRUGS (2)
  1. HYRIMOZ [Suspect]
     Active Substance: ADALIMUMAB-ADAZ
     Indication: ANKYLOSING SPONDYLITIS
     Dosage: 40 MG, Q2W
     Route: 065
     Dates: start: 20190523
  2. HYRIMOZ [Suspect]
     Active Substance: ADALIMUMAB-ADAZ
     Dosage: UNK UNK, Q2W
     Route: 065
     Dates: start: 20190704

REACTIONS (7)
  - Arthralgia [Unknown]
  - COVID-19 [Unknown]
  - Joint swelling [Unknown]
  - Ankylosing spondylitis [Unknown]
  - Fatigue [Unknown]
  - Drug ineffective [Unknown]
  - Pain in extremity [Unknown]
